FAERS Safety Report 5739289-5 (Version None)
Quarter: 2008Q2

REPORT INFORMATION
  Report Type: 
  Country: None (occurrence: None)
  Receive Date: 20080515
  Receipt Date: 20080509
  Transmission Date: 20081010
  Serious: Yes (Other)
  Sender: FDA-Public Use
  Company Number: GB-JNJFOC-20080502354

PATIENT
  Age: 36 Year
  Sex: Female

DRUGS (2)
  1. RISPERIDONE [Suspect]
     Indication: PARANOIA
     Route: 048
  2. FLUOXETINE [Concomitant]
     Indication: DEPRESSION
     Route: 048

REACTIONS (4)
  - DYSPNOEA [None]
  - EYE SWELLING [None]
  - HYPERSENSITIVITY [None]
  - PHARYNGEAL OEDEMA [None]
